FAERS Safety Report 8089384-3 (Version None)
Quarter: 2012Q1

REPORT INFORMATION
  Report Type: 
  Country: None (occurrence: None)
  Receive Date: 20120128
  Receipt Date: 20110725
  Transmission Date: 20120608
  Serious: No
  Sender: FDA-Public Use
  Company Number: US-ABBOTT-11P-163-0838270-00

PATIENT
  Age: 64 Year
  Sex: Female

DRUGS (7)
  1. HYDROCODONE BITARTRATE [Concomitant]
     Indication: ARTHRALGIA
     Dosage: 2-3 DAILY AS NEEDED
  2. CYMBALTA [Concomitant]
     Indication: FIBROMYALGIA
     Dosage: DAILY DOSE: 60MG
  3. COUMADIN [Concomitant]
     Indication: CARDIAC DISORDER
     Dosage: 10MG MON-FRI, 7.5MG SAT+SUN
  4. HUMIRA [Suspect]
     Indication: RHEUMATOID ARTHRITIS
     Dates: start: 20100901
  5. CYMBALTA [Concomitant]
     Indication: ARTHRALGIA
  6. BISOPROLOL FUMARATE [Concomitant]
     Indication: CARDIAC DISORDER
     Dosage: 1/2 OF 5MG TAB DAILY
  7. TRIAMTERENE [Concomitant]
     Indication: DIURETIC THERAPY
     Dosage: 75/50 1/2 TAB DAILY

REACTIONS (2)
  - PAIN [None]
  - DEVICE MALFUNCTION [None]
